FAERS Safety Report 8439296 (Version 2)
Quarter: 2013Q2

REPORT INFORMATION
  Report Type: Spontaneous
  Country: US (occurrence: None)
  Receive Date: 20120104
  Receipt Date: 20120508
  Transmission Date: 20140414
  Serious: Yes (Other)
  Sender: FDA-Public Use
  Company Number: 2011HGS-002672

PATIENT
  Age: 49 Year
  Sex: Female
  Weight: 85.73 kg

DRUGS (13)
  1. BENLYSTA [Suspect]
     Indication: SYSTEMIC LUPUS ERYTHEMATOSUS
     Dosage: 1 IN 28 D, INTRAVENOUS DRIP
     Route: 041
     Dates: start: 20110601
  2. PLAQUENIL (HYDROXYCHLOROQUINE SULFATE) (HYDROXYCHLOROQUINE SULFATE) [Concomitant]
  3. PREDNISONE [Concomitant]
  4. ATACAND [Concomitant]
  5. PEPCID (FAMOTIDINE) (FAMOTIDINE) [Concomitant]
  6. DIAZEPAM [Concomitant]
  7. VITAMIN D (ERGOCALCIFEROL) (ERGOCALCIFEROL) [Concomitant]
  8. ADVAIR INHALER (SERETIDE MITE) (FLUTICASONE PROPIONATE, SALMETEROL XINAFOATE) [Concomitant]
  9. ALBUTEROL INHALER (SALBUTAMOL) (SALBUTAMOL) [Concomitant]
  10. HYDROMORPHONE (HYDORMORPHONE) (HYDROMORPHONE) [Concomitant]
  11. FENTANYL PATCHES (FENTANYL) (FENTANYL) [Concomitant]
  12. CYMBALTA (DULOXETINE HYDROCHLORIDE) (DULOXETINE HYDROCHLORIDE) [Concomitant]
  13. ZOCOR [Concomitant]

REACTIONS (8)
  - UPPER-AIRWAY COUGH SYNDROME [None]
  - RHINORRHOEA [None]
  - COUGH [None]
  - TREMOR [None]
  - Fatigue [None]
  - Malaise [None]
  - Migraine [None]
  - Nausea [None]
